FAERS Safety Report 5869080-0 (Version None)
Quarter: 2008Q3

REPORT INFORMATION
  Report Type: 
  Country: None (occurrence: None)
  Receive Date: 20080903
  Receipt Date: 20080819
  Transmission Date: 20090109
  Serious: Yes (Hospitalization, Other)
  Sender: FDA-Public Use
  Company Number: US-AVENTIS-200611392US

PATIENT
  Sex: Female

DRUGS (5)
  1. KETEK [Suspect]
     Indication: SINUSITIS
     Route: 048
     Dates: start: 20060203, end: 20060203
  2. KETEK [Suspect]
     Route: 048
     Dates: start: 20060203, end: 20060203
  3. ACETAMINOPHEN [Concomitant]
     Dosage: DOSE: UNK
  4. NYQUIL [Concomitant]
     Dosage: DOSE: UNK
  5. ALLERGY INJECTIONS [Concomitant]
     Dosage: DOSE: UNK
     Route: 058

REACTIONS (39)
  - ACUTE HEPATIC FAILURE [None]
  - AMMONIA INCREASED [None]
  - APHASIA [None]
  - ASTHENIA [None]
  - BRAIN OEDEMA [None]
  - CEREBRAL INFARCTION [None]
  - COAGULOPATHY [None]
  - CONVULSION [None]
  - DEEP VEIN THROMBOSIS [None]
  - DIPLOPIA [None]
  - DISSEMINATED INTRAVASCULAR COAGULATION [None]
  - DYSPHAGIA [None]
  - FATIGUE [None]
  - HAEMORRHAGE INTRACRANIAL [None]
  - HEMIPARESIS [None]
  - HEPATIC ENCEPHALOPATHY [None]
  - HEPATITIS [None]
  - HYPERHIDROSIS [None]
  - HYPOAESTHESIA FACIAL [None]
  - INTERNATIONAL NORMALISED RATIO INCREASED [None]
  - JAUNDICE [None]
  - LETHARGY [None]
  - LEUKOCYTOSIS [None]
  - MENTAL STATUS CHANGES [None]
  - METABOLIC DISORDER [None]
  - MUSCLE DISORDER [None]
  - NAUSEA [None]
  - OEDEMA [None]
  - ORAL CANDIDIASIS [None]
  - PARALYSIS [None]
  - PNEUMONIA [None]
  - PYREXIA [None]
  - RENAL FAILURE [None]
  - STRABISMUS [None]
  - TRANSAMINASES INCREASED [None]
  - URINARY TRACT INFECTION [None]
  - VOCAL CORD DISORDER [None]
  - VOCAL CORD PARESIS [None]
  - VOMITING [None]
